FAERS Safety Report 9239017 (Version 1)
Quarter: 2013Q2

REPORT INFORMATION
  Report Type: Spontaneous
  Country: GB (occurrence: GB)
  Receive Date: 20130418
  Receipt Date: 20130418
  Transmission Date: 20140414
  Serious: Yes (Life-Threatening, Hospitalization, Disabling, Other)
  Sender: FDA-Public Use
  Company Number: GB-B.I. PHARMACEUTICALS,INC./RIDGEFIELD-2013-UK-00871UK

PATIENT
  Age: 85 Year
  Sex: Female

DRUGS (11)
  1. PRADAXA [Suspect]
     Indication: PROPHYLAXIS
     Dosage: 150 MG
     Route: 048
     Dates: start: 20130316, end: 20130317
  2. ASPIRIN [Suspect]
     Indication: PROPHYLAXIS
     Route: 048
     Dates: end: 20130324
  3. ASPIRIN [Suspect]
     Dosage: 300 MG
     Route: 048
  4. ASPIRIN [Suspect]
     Dosage: 75 MG
     Route: 048
  5. CLEXANE [Suspect]
     Indication: PROPHYLAXIS
     Route: 058
     Dates: start: 20130316, end: 20130317
  6. CLOPIDOGREL [Suspect]
     Indication: PROPHYLAXIS
     Dosage: 75 MG
     Route: 048
     Dates: start: 20130321, end: 20130324
  7. ANAESTHETICS NOS [Concomitant]
     Indication: HIP ARTHROPLASTY
     Dates: start: 20130315, end: 20130315
  8. GABAPENTIN [Concomitant]
     Dosage: 400 MG
     Route: 048
  9. PARACETAMOL [Concomitant]
     Dosage: 4 G
     Route: 048
  10. RAMIPRIL [Concomitant]
     Dosage: 5 MG
     Route: 048
  11. SIMVASTATIN [Concomitant]
     Dosage: 5 MG
     Route: 048

REACTIONS (2)
  - Ischaemic stroke [Not Recovered/Not Resolved]
  - Rectal haemorrhage [Not Recovered/Not Resolved]
